FAERS Safety Report 8694446 (Version 6)
Quarter: 2025Q1

REPORT INFORMATION
  Report Type: Spontaneous
  Country: US (occurrence: US)
  Receive Date: 20120731
  Receipt Date: 20250206
  Transmission Date: 20250409
  Serious: Yes (Hospitalization, Other)
  Sender: ROCHE
  Company Number: US-ROCHE-1092028

PATIENT
  Age: 66 Year
  Sex: Female

DRUGS (8)
  1. BONIVA [Suspect]
     Active Substance: IBANDRONATE SODIUM
     Indication: Osteoporosis
     Route: 048
     Dates: start: 20080410, end: 201110
  2. BONIVA [Suspect]
     Active Substance: IBANDRONATE SODIUM
     Indication: Osteopenia
  3. FOSAMAX [Suspect]
     Active Substance: ALENDRONATE SODIUM
     Indication: Osteoporosis
     Route: 065
     Dates: start: 200604, end: 2011
  4. ACTONEL [Suspect]
     Active Substance: RISEDRONATE SODIUM
     Indication: Osteoporosis
     Route: 065
     Dates: start: 20060407, end: 20080226
  5. ACTONEL [Suspect]
     Active Substance: RISEDRONATE SODIUM
     Indication: Osteopenia
  6. NEOSPORIN LIP HEALTH [Concomitant]
  7. BETADINE [Concomitant]
     Active Substance: POVIDONE-IODINE
  8. DOXYCYCLINE [Concomitant]
     Active Substance: DOXYCYCLINE

REACTIONS (15)
  - Femur fracture [Unknown]
  - Femur fracture [Unknown]
  - Emotional distress [Unknown]
  - Osteonecrosis [Unknown]
  - Cough [Unknown]
  - Lower respiratory tract congestion [Unknown]
  - Bronchitis [Unknown]
  - Temporomandibular pain and dysfunction syndrome [Unknown]
  - Osteoarthritis [Unknown]
  - Osteonecrosis [Unknown]
  - Constipation [Unknown]
  - Dizziness [Unknown]
  - Nausea [Unknown]
  - Chest pain [Unknown]
  - Pain in extremity [Unknown]

NARRATIVE: CASE EVENT DATE: 20080819
